FAERS Safety Report 9113067 (Version 1)
Quarter: 2013Q1

REPORT INFORMATION
  Report Type: Spontaneous
  Country: US (occurrence: US)
  Receive Date: 20130211
  Receipt Date: 20130211
  Transmission Date: 20140127
  Serious: Yes (Other)
  Sender: FDA-Public Use
  Company Number: US-BRISTOL-MYERS SQUIBB COMPANY-17339110

PATIENT
  Age: 52 Year
  Sex: Male

DRUGS (8)
  1. COUMADIN [Suspect]
     Dates: start: 200509
  2. TOPROL [Suspect]
  3. PLAVIX [Suspect]
     Dates: start: 200601
  4. PRILOSEC [Concomitant]
  5. ACETYLSALICYLIC ACID [Concomitant]
  6. MULTIVITAMIN [Concomitant]
  7. VITAMIN C [Concomitant]
     Dosage: 2000 UNITS NOS
  8. VITAMIN D [Concomitant]
     Dosage: 2000 UNITS NOS

REACTIONS (2)
  - Transient ischaemic attack [Unknown]
  - Haemorrhage [Unknown]
